FAERS Safety Report 4613726-1 (Version None)
Quarter: 2005Q1

REPORT INFORMATION
  Report Type: 
  Country: None (occurrence: None)
  Receive Date: 20050321
  Receipt Date: 20050307
  Transmission Date: 20050727
  Serious: Yes (Other)
  Sender: FDA-Public Use
  Company Number: US-GLAXOSMITHKLINE-A0548534A

PATIENT
  Age: 75 Year
  Sex: Male

DRUGS (2)
  1. TUMS [Suspect]
     Route: 048
  2. TUMS E-X TABLETS, SUGAR FREE ORANGE [Suspect]
     Route: 048

REACTIONS (2)
  - DIABETES MELLITUS NON-INSULIN-DEPENDENT [None]
  - KNEE ARTHROPLASTY [None]
